FAERS Safety Report 10143672 (Version 2)
Quarter: 2014Q2

REPORT INFORMATION
  Report Type: Spontaneous
  Country: US (occurrence: US)
  Receive Date: 20140430
  Receipt Date: 20140509
  Transmission Date: 20141212
  Serious: No
  Sender: FDA-Public Use
  Company Number: US-PFIZER INC-2014118948

PATIENT
  Age: 75 Year
  Sex: Female
  Weight: 53.52 kg

DRUGS (4)
  1. EFFEXOR XR [Suspect]
     Indication: DEPRESSION
     Dosage: 150 MG, UNK
  2. EFFEXOR XR [Suspect]
     Dosage: 150 MG, DAILY
     Dates: end: 20140320
  3. PREMARIN [Concomitant]
     Dosage: 0.625
  4. LEVOTHYROXINE [Concomitant]
     Dosage: 0.5 MG, UNK

REACTIONS (2)
  - Nervousness [Unknown]
  - Feeling abnormal [Unknown]
